FAERS Safety Report 5220402-3 (Version None)
Quarter: 2007Q1

REPORT INFORMATION
  Report Type: 
  Country: None (occurrence: None)
  Receive Date: 20070125
  Receipt Date: 20070117
  Transmission Date: 20070707
  Serious: Yes (Hospitalization)
  Sender: FDA-Public Use
  Company Number: DE-ABBOTT-06P-062-0340055-00

PATIENT
  Age: 72 Year
  Sex: Male

DRUGS (3)
  1. HUMIRA [Suspect]
     Indication: RHEUMATOID ARTHRITIS
     Dates: start: 20060101, end: 20060501
  2. LEFLUNOMIDE [Concomitant]
     Indication: RHEUMATOID ARTHRITIS
     Dates: start: 19980101
  3. LEFLUNOMIDE [Concomitant]
     Dates: end: 20060701

REACTIONS (7)
  - CARDIAC FAILURE [None]
  - DYSPNOEA [None]
  - ERYTHEMA [None]
  - INFLAMMATION [None]
  - PYREXIA [None]
  - STOMATITIS [None]
  - TREATMENT NONCOMPLIANCE [None]
